FAERS Safety Report 20091456 (Version 9)
Quarter: 2024Q4

REPORT INFORMATION
  Report Type: Spontaneous
  Country: US (occurrence: US)
  Receive Date: 20211119
  Receipt Date: 20241007
  Transmission Date: 20250115
  Serious: Yes (Hospitalization, Disabling)
  Sender: PFIZER
  Company Number: US-PFIZER INC-2021401503

PATIENT
  Age: 49 Year
  Sex: Male
  Weight: 95.238 kg

DRUGS (9)
  1. NARDIL [Suspect]
     Active Substance: PHENELZINE SULFATE
     Indication: Depression
     Dosage: UNK
     Dates: start: 1997
  2. NARDIL [Suspect]
     Active Substance: PHENELZINE SULFATE
     Indication: Anxiety
     Dosage: UNK
     Dates: start: 1998
  3. NARDIL [Suspect]
     Active Substance: PHENELZINE SULFATE
     Dosage: 30 MG TO 90 MG
     Dates: start: 2000
  4. NARDIL [Suspect]
     Active Substance: PHENELZINE SULFATE
     Dosage: 75 MG, 1X/DAY
     Route: 048
     Dates: start: 2001, end: 2005
  5. NARDIL [Suspect]
     Active Substance: PHENELZINE SULFATE
     Dosage: 60 MG TO 90 MG
     Route: 048
     Dates: start: 2002, end: 2007
  6. NARDIL [Suspect]
     Active Substance: PHENELZINE SULFATE
     Dosage: 15 MG
     Dates: start: 2003
  7. NARDIL [Suspect]
     Active Substance: PHENELZINE SULFATE
     Dosage: 15 MG
     Dates: start: 2017
  8. NARDIL [Suspect]
     Active Substance: PHENELZINE SULFATE
     Dosage: 15 MG; 6 TIMES PER DAY
     Route: 048
     Dates: start: 199906, end: 200604
  9. SERJET [Concomitant]
     Indication: Sleep disorder
     Dosage: 25 MG
     Route: 048

REACTIONS (3)
  - Drug ineffective [Not Recovered/Not Resolved]
  - Product coating issue [Not Recovered/Not Resolved]
  - Depression [Not Recovered/Not Resolved]

NARRATIVE: CASE EVENT DATE: 20020101
